FAERS Safety Report 13359216 (Version 1)
Quarter: 2017Q1

REPORT INFORMATION
  Report Type: Spontaneous
  Country: DE (occurrence: DE)
  Receive Date: 20170322
  Receipt Date: 20170322
  Transmission Date: 20170429
  Serious: Yes (Hospitalization)
  Sender: FDA-Public Use
  Company Number: DE-PFIZER INC-2017067281

PATIENT
  Age: 78 Year
  Sex: Male

DRUGS (1)
  1. TAVOR EXPIDET [Suspect]
     Active Substance: LORAZEPAM
     Dosage: 1 MG, 1X/DAY
     Dates: start: 2016

REACTIONS (4)
  - Dyspnoea [Unknown]
  - Insomnia [Unknown]
  - Cardiac disorder [Unknown]
  - Bronchitis [Unknown]
